APPROVED DRUG PRODUCT: ZELVYSIA
Active Ingredient: SAPROPTERIN DIHYDROCHLORIDE
Strength: 100MG/PACKET
Dosage Form/Route: POWDER;ORAL
Application: A218645 | Product #001 | TE Code: AB
Applicant: AUCTA PHARMACEUTICALS INC
Approved: Apr 29, 2025 | RLD: No | RS: No | Type: RX